FAERS Safety Report 7396553 (Version 2)
Quarter: 2014Q3

REPORT INFORMATION
  Report Type: Spontaneous
  Country: US (occurrence: None)
  Receive Date: 20100513
  Receipt Date: 20140804
  Transmission Date: 20150326
  Serious: Yes (Other)
  Sender: FDA-Public Use
  Company Number: 2010S1002715

PATIENT
  Age: 57 Year
  Sex: Female

DRUGS (10)
  1. TIAZAC (DILTIAZEM HYDROCHLORIDE) [Concomitant]
  2. PHOSPHO-SODA [Suspect]
     Active Substance: SODIUM PHOSPHATE, DIBASIC\SODIUM PHOSPHATE, MONOBASIC
     Indication: COLONOSCOPY
     Dosage: PO
     Route: 048
     Dates: start: 20010801, end: 20010801
  3. CLONIDINE. [Concomitant]
     Active Substance: CLONIDINE
  4. ALLOPURINOL. [Concomitant]
     Active Substance: ALLOPURINOL
  5. COREG [Concomitant]
     Active Substance: CARVEDILOL
  6. LEVOXYL (LEVOTHYROXINE SODIUM) [Concomitant]
  7. INSULIN [Concomitant]
     Active Substance: INSULIN NOS
  8. UROCET (PARACETAMOL, TRAMADOL HYDROCHLORIDE) [Concomitant]
  9. AMARYL [Concomitant]
     Active Substance: GLIMEPIRIDE
  10. ZOCOR [Concomitant]
     Active Substance: SIMVASTATIN

REACTIONS (1)
  - Renal failure [None]
